FAERS Safety Report 5907875-5 (Version None)
Quarter: 2008Q4

REPORT INFORMATION
  Report Type: 
  Country: None (occurrence: None)
  Receive Date: 20081003
  Receipt Date: 20080923
  Transmission Date: 20090506
  Serious: Yes (Hospitalization, Other)
  Sender: FDA-Public Use
  Company Number: US-PFIZER INC-2008062440

PATIENT
  Sex: Female
  Weight: 82 kg

DRUGS (13)
  1. AROMASIN [Suspect]
     Indication: BREAST CANCER
     Route: 048
     Dates: start: 20080715
  2. NORVASC [Concomitant]
  3. ACETYLSALICYLIC ACID SRT [Concomitant]
  4. CALCIUM CARBONATE [Concomitant]
  5. COMBIVENT [Concomitant]
  6. NEURONTIN [Concomitant]
  7. IMDUR [Concomitant]
  8. LANTUS [Concomitant]
  9. LOVASTATIN [Concomitant]
  10. METOPROLOL TARTRATE [Concomitant]
  11. PLAVIX [Concomitant]
  12. PROTONIX [Concomitant]
  13. AMOXICILLIN [Concomitant]

REACTIONS (2)
  - BLOOD CREATININE INCREASED [None]
  - RENAL FAILURE CHRONIC [None]
